FAERS Safety Report 4393873-2 (Version None)
Quarter: 2004Q3

REPORT INFORMATION
  Report Type: 
  Country: None (occurrence: None)
  Receive Date: 20040702
  Receipt Date: 20040622
  Transmission Date: 20050211
  Serious: Yes (Other)
  Sender: FDA-Public Use
  Company Number: 2004220889US

PATIENT
  Sex: Female

DRUGS (1)
  1. CELEBREX [Suspect]

REACTIONS (5)
  - ABORTION SPONTANEOUS [None]
  - CEREBROVASCULAR ACCIDENT [None]
  - COMPLICATIONS OF MATERNAL EXPOSURE TO THERAPEUTIC DRUGS [None]
  - MATERNAL DRUGS AFFECTING FOETUS [None]
  - STOMACH DISCOMFORT [None]
